FAERS Safety Report 5530701-3 (Version None)
Quarter: 2007Q4

REPORT INFORMATION
  Report Type: 
  Country: None (occurrence: None)
  Receive Date: 20071130
  Receipt Date: 20071122
  Transmission Date: 20080405
  Serious: Yes (Other)
  Sender: FDA-Public Use
  Company Number: ZA-ASTRAZENECA-2007SE06174

PATIENT
  Age: 21215 Day
  Sex: Male
  Weight: 96 kg

DRUGS (3)
  1. CRESTOR [Suspect]
     Indication: BLOOD CHOLESTEROL
     Route: 048
     Dates: start: 20071107
  2. ATACAND HCT [Concomitant]
     Indication: HYPERTENSION
  3. AVELEN [Concomitant]
     Indication: INFECTION

REACTIONS (3)
  - HYPOAESTHESIA FACIAL [None]
  - PRURITUS [None]
  - RASH [None]
